FAERS Safety Report 4473998-3 (Version None)
Quarter: 2004Q4

REPORT INFORMATION
  Report Type: 
  Country: None (occurrence: None)
  Receive Date: 20041008
  Receipt Date: 20040922
  Transmission Date: 20050328
  Serious: Yes (Hospitalization)
  Sender: FDA-Public Use
  Company Number: USA020414432

PATIENT
  Age: 82 Year
  Sex: Female
  Weight: 62 kg

DRUGS (9)
  1. EVISTA [Suspect]
     Indication: OSTEOPOROSIS
     Dosage: 60 MG/1 DAY
     Dates: start: 20001201
  2. CELEBREX [Concomitant]
  3. MEVACOR [Concomitant]
  4. SERAX [Concomitant]
  5. DOXYCYCLINE [Concomitant]
  6. ASPIRIN [Concomitant]
  7. CALTRATE (CALCIUM CARBONATE) [Concomitant]
  8. CITRACAL (CALCIUM CITRATE) [Concomitant]
  9. MULTI-VITAMIN [Concomitant]

REACTIONS (7)
  - ANXIETY [None]
  - BURNING SENSATION [None]
  - CONSTIPATION [None]
  - DIARRHOEA [None]
  - FLUSHING [None]
  - HEART RATE INCREASED [None]
  - MUSCLE CRAMP [None]
